FAERS Safety Report 4661625-1 (Version None)
Quarter: 2005Q2

REPORT INFORMATION
  Report Type: 
  Country: None (occurrence: None)
  Receive Date: 20050513
  Receipt Date: 20050303
  Transmission Date: 20051028
  Serious: Yes (Death)
  Sender: FDA-Public Use
  Company Number: 200510778FR

PATIENT
  Age: 60 Year
  Sex: Male

DRUGS (6)
  1. TARGOCID [Suspect]
     Indication: ENDOCARDITIS BACTERIAL
     Route: 042
     Dates: start: 20050113, end: 20050121
  2. FLAGYL [Suspect]
     Indication: PNEUMONIA ASPIRATION
     Dates: start: 20041201
  3. NEXIUM [Suspect]
     Route: 048
     Dates: start: 20041215, end: 20050130
  4. CORDARONE [Suspect]
     Indication: ATRIAL FIBRILLATION
     Route: 048
     Dates: start: 20041223
  5. VANCOMYCIN [Suspect]
     Indication: ENDOCARDITIS BACTERIAL
     Route: 042
     Dates: start: 20050103, end: 20050113
  6. GENTAMICIN [Concomitant]
     Indication: ENDOCARDITIS BACTERIAL
     Route: 042
     Dates: start: 20041221, end: 20041225

REACTIONS (8)
  - ANAEMIA [None]
  - BONE MARROW DEPRESSION [None]
  - CARDIAC ARREST [None]
  - ESCHERICHIA INFECTION [None]
  - HAEMODIALYSIS [None]
  - NEUTROPENIA [None]
  - SEPTIC SHOCK [None]
  - THROMBOCYTOPENIA [None]
